FAERS Safety Report 23508072 (Version 6)
Quarter: 2024Q1

REPORT INFORMATION
  Report Type: Report from Study
  Country: MX (occurrence: MX)
  Receive Date: 20240209
  Receipt Date: 20240314
  Transmission Date: 20240409
  Serious: Yes (Other)
  Sender: FDA-Public Use
  Company Number: MX-AstraZeneca-2023A243932

PATIENT
  Age: 200 Day
  Sex: Male
  Weight: 9.4 kg

DRUGS (6)
  1. SYNAGIS [Suspect]
     Active Substance: PALIVIZUMAB
     Indication: Antiviral prophylaxis
     Dosage: 1.1 ML, MONTHLY
     Route: 030
     Dates: start: 20231020, end: 20231020
  2. SYNAGIS [Suspect]
     Active Substance: PALIVIZUMAB
     Dosage: 1.3 ML, MONTHLY
     Route: 030
     Dates: start: 20231208, end: 20231208
  3. SYNAGIS [Suspect]
     Active Substance: PALIVIZUMAB
     Dosage: 1.3 ML, MONTHLY
     Route: 030
     Dates: start: 20240126, end: 20240126
  4. SYNAGIS [Suspect]
     Active Substance: PALIVIZUMAB
     Dosage: 1.3 ML, MONTHLY
     Route: 030
     Dates: start: 20240223, end: 20240223
  5. IRON [Concomitant]
     Active Substance: IRON
     Indication: Product used for unknown indication
  6. VITAMINS [Concomitant]
     Active Substance: VITAMINS
     Indication: Product used for unknown indication

REACTIONS (15)
  - Cough [Recovered/Resolved]
  - Productive cough [Recovered/Resolved]
  - Dyspnoea [Recovered/Resolved]
  - Choking [Recovered/Resolved]
  - Sleep disorder [Recovered/Resolved]
  - Illness [Recovered/Resolved]
  - Diarrhoea [Recovered/Resolved]
  - Vomiting [Recovered/Resolved]
  - Crying [Recovered/Resolved]
  - Pain [Recovered/Resolved]
  - Irritability [Recovered/Resolved]
  - Hypersensitivity [Recovered/Resolved]
  - Product administration error [Recovered/Resolved]
  - Cyanosis [Recovered/Resolved]
  - Influenza [Recovered/Resolved]

NARRATIVE: CASE EVENT DATE: 20231020
